FAERS Safety Report 19493637 (Version 1)
Quarter: 2021Q3

REPORT INFORMATION
  Report Type: Spontaneous
  Country: FR (occurrence: FR)
  Receive Date: 20210705
  Receipt Date: 20210705
  Transmission Date: 20211014
  Serious: No
  Sender: FDA-Public Use
  Company Number: FR-PFIZER INC-2021663399

PATIENT

DRUGS (1)
  1. NIVESTIM [Suspect]
     Active Substance: FILGRASTIM

REACTIONS (1)
  - Device leakage [Unknown]
